APPROVED DRUG PRODUCT: TIOCONAZOLE
Active Ingredient: TIOCONAZOLE
Strength: 6.5%
Dosage Form/Route: OINTMENT;VAGINAL
Application: A075915 | Product #001
Applicant: L PERRIGO CO
Approved: Nov 21, 2001 | RLD: No | RS: No | Type: OTC